FAERS Safety Report 7313746-2 (Version None)
Quarter: 2011Q1

REPORT INFORMATION
  Report Type: 
  Country: None (occurrence: None)
  Receive Date: 20110218
  Receipt Date: 20110218
  Transmission Date: 20110831
  Serious: Yes (Hospitalization)
  Sender: FDA-Public Use
  Company Number: None

PATIENT
  Age: 22 Month
  Sex: Male
  Weight: 136.0791 kg

DRUGS (2)
  1. METHYLPREDNISOLONE [Suspect]
     Indication: BRONCHITIS
     Dosage: 5-4-3-2-1 5-1STDAY THRU 1-LA PO
     Route: 048
     Dates: start: 20110209, end: 20110213
  2. LISINOPRIL [Suspect]
     Dosage: ONE PER DAY PO
     Route: 048
     Dates: start: 20110209, end: 20110215

REACTIONS (6)
  - DELIRIUM [None]
  - AMNESIA [None]
  - DECREASED APPETITE [None]
  - PSYCHOTIC DISORDER [None]
  - ABNORMAL BEHAVIOUR [None]
  - STARING [None]
